FAERS Safety Report 21657905 (Version 1)
Quarter: 2022Q4

REPORT INFORMATION
  Report Type: Spontaneous
  Country: US (occurrence: None)
  Receive Date: 20221128
  Receipt Date: 20221128
  Transmission Date: 20230112
  Serious: No
  Sender: FDA-Public Use
  Company Number: None

PATIENT
  Sex: Female

DRUGS (3)
  1. TRULICITY [Suspect]
     Active Substance: DULAGLUTIDE
     Indication: Type 2 diabetes mellitus
     Dosage: OTHER FREQUENCY : ONCE WEEKLY;?
     Route: 058
     Dates: start: 20220914, end: 20221018
  2. Basaglar insulin SQ 40 units once daily [Concomitant]
  3. Synjardy XR 25/1000 mg PO once daily [Concomitant]

REACTIONS (1)
  - Ageusia [None]

NARRATIVE: CASE EVENT DATE: 20221018
